FAERS Safety Report 20735733 (Version 1)
Quarter: 2022Q2

REPORT INFORMATION
  Report Type: Spontaneous
  Country: IT (occurrence: IT)
  Receive Date: 20220421
  Receipt Date: 20220421
  Transmission Date: 20220721
  Serious: Yes (Hospitalization, Other)
  Sender: FDA-Public Use
  Company Number: IT-PFIZER INC-202200573684

PATIENT
  Age: 78 Year
  Sex: Female

DRUGS (4)
  1. VENLAFAXINE HCL [Suspect]
     Active Substance: VENLAFAXINE HYDROCHLORIDE
     Indication: Antipsychotic therapy
     Dosage: 300 MG, DAILY
  2. DIAZEPAM [Suspect]
     Active Substance: DIAZEPAM
     Indication: Antipsychotic therapy
     Dosage: 20 MG, DAILY
  3. TRAZODONE HYDROCHLORIDE [Suspect]
     Active Substance: TRAZODONE HYDROCHLORIDE
     Indication: Antipsychotic therapy
     Dosage: 600 MG, DAILY
  4. DULOXETINE [Suspect]
     Active Substance: DULOXETINE
     Indication: Antipsychotic therapy
     Dosage: 60 MG, DAILY

REACTIONS (2)
  - Marchiafava-Bignami disease [Recovering/Resolving]
  - Drug abuse [Recovering/Resolving]
